FAERS Safety Report 7052524-9 (Version None)
Quarter: 2010Q4

REPORT INFORMATION
  Report Type: 
  Country: None (occurrence: None)
  Receive Date: 20101019
  Receipt Date: 20101011
  Transmission Date: 20110411
  Serious: Yes (Other)
  Sender: FDA-Public Use
  Company Number: AT-B.I. PHARMACEUTICALS,INC./RIDGEFIELD-2010-AP-00524AP

PATIENT
  Age: 39 Year
  Sex: Male
  Weight: 70 kg

DRUGS (1)
  1. SPIRIVA RESPIMAT [Suspect]
     Dosage: 2 DOSAGE FORM 1 X DAILY
     Route: 055
     Dates: start: 20100921, end: 20100922

REACTIONS (1)
  - DYSPNOEA [None]
